FAERS Safety Report 8350314-8 (Version None)
Quarter: 2012Q2

REPORT INFORMATION
  Report Type: 
  Country: None (occurrence: None)
  Receive Date: 20120510
  Receipt Date: 20120426
  Transmission Date: 20120825
  Serious: Yes (Other)
  Sender: FDA-Public Use
  Company Number: AT-ROCHE-1053006

PATIENT
  Sex: Female
  Weight: 44 kg

DRUGS (2)
  1. OLEOVIT D3 [Concomitant]
     Indication: OSTEOPOROSIS
     Route: 048
     Dates: start: 20030101, end: 20110101
  2. BONIVA [Suspect]
     Indication: OSTEOPOROSIS
     Route: 042
     Dates: start: 20070116, end: 20120315

REACTIONS (2)
  - JAW DISORDER [None]
  - OSTEONECROSIS OF JAW [None]
